FAERS Safety Report 8277762-9 (Version None)
Quarter: 2012Q2

REPORT INFORMATION
  Report Type: 
  Country: None (occurrence: None)
  Receive Date: 20120412
  Receipt Date: 20120405
  Transmission Date: 20120825
  Serious: Yes (Other)
  Sender: FDA-Public Use
  Company Number: US-JNJFOC-20120403069

PATIENT
  Sex: Female

DRUGS (3)
  1. VITAMIN B-12 [Concomitant]
  2. STELARA [Suspect]
     Indication: PSORIASIS
     Route: 058
     Dates: start: 20100101, end: 20100101
  3. UNKNOWN MEDICATION [Concomitant]

REACTIONS (1)
  - MYELODYSPLASTIC SYNDROME [None]
